FAERS Safety Report 17757839 (Version 2)
Quarter: 2020Q2

REPORT INFORMATION
  Report Type: Spontaneous
  Country: US (occurrence: US)
  Receive Date: 20200507
  Receipt Date: 20200513
  Transmission Date: 20200714
  Serious: Yes (Other)
  Sender: FDA-Public Use
  Company Number: US-PFIZER INC-2018144193

PATIENT
  Age: 63 Year
  Sex: Female

DRUGS (2)
  1. XIIDRA [Concomitant]
     Active Substance: LIFITEGRAST
     Indication: EYE DISORDER
     Dosage: UNK
  2. LYRICA [Suspect]
     Active Substance: PREGABALIN
     Indication: RHEUMATOID ARTHRITIS
     Dosage: 100 MG, 4X/DAY

REACTIONS (5)
  - Product use in unapproved indication [Unknown]
  - Eye inflammation [Unknown]
  - Sjogren^s syndrome [Unknown]
  - Stomatitis [Unknown]
  - Off label use [Unknown]
